FAERS Safety Report 20490363 (Version 1)
Quarter: 2022Q1

REPORT INFORMATION
  Report Type: Spontaneous
  Country: US (occurrence: US)
  Receive Date: 20220218
  Receipt Date: 20220218
  Transmission Date: 20220423
  Serious: No
  Sender: FDA-Public Use
  Company Number: US-MYLANLABS-2022M1010816

PATIENT
  Sex: Male

DRUGS (1)
  1. CYSTAGON [Suspect]
     Active Substance: CYSTEAMINE BITARTRATE
     Indication: Cystinosis
     Dosage: 600 MILLIGRAM, Q6H
     Dates: start: 201510

REACTIONS (1)
  - Pain [Unknown]
